FAERS Safety Report 7489533-1 (Version None)
Quarter: 2011Q2

REPORT INFORMATION
  Report Type: 
  Country: None (occurrence: None)
  Receive Date: 20110519
  Receipt Date: 20110510
  Transmission Date: 20111010
  Serious: Yes (Hospitalization)
  Sender: FDA-Public Use
  Company Number: FR-BRISTOL-MYERS SQUIBB COMPANY-15743123

PATIENT
  Age: 61 Year
  Sex: Female

DRUGS (14)
  1. MIANSERIN [Suspect]
     Dosage: 1DF=ONE INTAKE DAILY
     Route: 048
  2. FLOLAN [Suspect]
     Route: 042
     Dates: start: 20090916
  3. LASIX [Suspect]
     Dosage: DF=TWO INTAKES A DAY
     Route: 048
  4. COUMADIN [Suspect]
     Dosage: SUSPENDED FROM 11-APR-2011 TO 13-APR-2011.
     Route: 048
  5. ATARAX [Suspect]
     Dosage: 1 INTAKE DAILY
     Route: 048
  6. REVATIO [Suspect]
     Dosage: 1DF=THREE INTAKES A DAY
     Route: 048
  7. LEVOTHYROXINE SODIUM [Suspect]
     Dosage: 1 SCORED TABLET ONE INTAKE DAILY
     Route: 048
  8. LORAZEPAM [Suspect]
     Route: 048
  9. TERCIAN [Suspect]
     Route: 048
  10. TRAMADOL HCL [Suspect]
     Dosage: 1 INTAKE DAILY
     Route: 048
  11. ZOLPIDEM [Suspect]
     Dosage: 1DF=TWO TABLETS AT BED TIME
     Route: 048
  12. NEXIUM [Suspect]
     Dosage: 1 INTAKE DAILY
     Route: 048
  13. VERPAMIL HCL [Suspect]
     Dosage: 3TABLETS OF 40 MG EACH DAILY UNTIL 11-APR-2011 THEN ONE 40 MG TABLET DAILY ORALLY ONGOING
     Route: 048
  14. TRACLEER [Suspect]
     Dosage: 1DF=TWO INTAKES A DAY
     Route: 048

REACTIONS (3)
  - EPISTAXIS [None]
  - THROMBOCYTOPENIA [None]
  - GASTROINTESTINAL HAEMORRHAGE [None]
